FAERS Safety Report 8330939-6 (Version None)
Quarter: 2012Q2

REPORT INFORMATION
  Report Type: 
  Country: None (occurrence: None)
  Receive Date: 20120502
  Receipt Date: 20120403
  Transmission Date: 20120825
  Serious: No
  Sender: FDA-Public Use
  Company Number: US-AMGEN-USASP2011047414

PATIENT
  Sex: Female

DRUGS (2)
  1. STELARA [Concomitant]
     Dosage: 45 MG, UNK
     Route: 058
  2. ENBREL [Suspect]
     Indication: PSORIASIS
     Dosage: 50 MG, QWK
     Dates: start: 20071101, end: 20110801

REACTIONS (3)
  - NAIL PSORIASIS [None]
  - ALOPECIA [None]
  - PSORIASIS [None]
